FAERS Safety Report 6972567-0 (Version None)
Quarter: 2010Q3

REPORT INFORMATION
  Report Type: 
  Country: None (occurrence: None)
  Receive Date: 20100824
  Receipt Date: 20100525
  Transmission Date: 20110219
  Serious: No
  Sender: FDA-Public Use
  Company Number: 309546

PATIENT
  Age: 62 Year
  Sex: Female

DRUGS (3)
  1. VICTOZA [Suspect]
     Indication: TYPE 2 DIABETES MELLITUS
     Dosage: 0.6 MG, QD, SUBCUTANEOUS; 1.2 MG, QD SUBCUTANEOUS; 1.8 MG, QD, SUBCUTANEOUS
     Route: 058
     Dates: start: 20100301, end: 20100321
  2. VICTOZA [Suspect]
     Indication: TYPE 2 DIABETES MELLITUS
     Dosage: 0.6 MG, QD, SUBCUTANEOUS; 1.2 MG, QD SUBCUTANEOUS; 1.8 MG, QD, SUBCUTANEOUS
     Route: 058
     Dates: start: 20100322, end: 20100422
  3. VICTOZA [Suspect]
     Indication: TYPE 2 DIABETES MELLITUS
     Dosage: 0.6 MG, QD, SUBCUTANEOUS; 1.2 MG, QD SUBCUTANEOUS; 1.8 MG, QD, SUBCUTANEOUS
     Route: 058
     Dates: start: 20100423

REACTIONS (5)
  - BLOOD GLUCOSE INCREASED [None]
  - FALL [None]
  - FATIGUE [None]
  - INJECTION SITE ERYTHEMA [None]
  - WEIGHT DECREASED [None]
